FAERS Safety Report 10489355 (Version 1)
Quarter: 2014Q4

REPORT INFORMATION
  Report Type: Spontaneous
  Country: US (occurrence: None)
  Receive Date: 20141001
  Receipt Date: 20141001
  Transmission Date: 20150528
  Serious: Yes (Other)
  Sender: FDA-Public Use
  Company Number: None

PATIENT
  Age: 81 Year
  Sex: Female

DRUGS (8)
  1. ZYDELIG [Suspect]
     Active Substance: IDELALISIB
     Indication: B-CELL LYMPHOMA
     Route: 048
  2. B-COMPLEX VITAMIN [Concomitant]
  3. VITAMIN A [Concomitant]
     Active Substance: VITAMIN A
  4. MULTIVITAMIN [Concomitant]
     Active Substance: VITAMINS
  5. VITAMIN C IV [Concomitant]
  6. VITAMIN E [Concomitant]
     Active Substance: .ALPHA.-TOCOPHEROL
  7. MAGIC MOUTHWASH (DIPHENHYDRAMINE, NYSTATIN, HYDROCORTISONE) [Concomitant]
  8. POTASSIUM [Concomitant]
     Active Substance: POTASSIUM

REACTIONS (4)
  - Rash pustular [None]
  - Pruritus [None]
  - Rash erythematous [None]
  - Rash macular [None]

NARRATIVE: CASE EVENT DATE: 20140921
